FAERS Safety Report 9236799 (Version 1)
Quarter: 2013Q2

REPORT INFORMATION
  Report Type: Report from Study
  Country: PT (occurrence: PT)
  Receive Date: 20130417
  Receipt Date: 20130417
  Transmission Date: 20140414
  Serious: Yes (Other)
  Sender: FDA-Public Use
  Company Number: PT-ROCHE-1211187

PATIENT
  Sex: 0

DRUGS (5)
  1. NELFINAVIR [Suspect]
     Indication: HIV INFECTION
     Route: 065
  2. CEFTRIAXONE [Suspect]
     Indication: HIV INFECTION
     Route: 065
  3. RITONAVIR [Suspect]
     Indication: HIV INFECTION
     Route: 065
  4. LOPINAVIR/RITONAVIR [Suspect]
     Indication: HIV INFECTION
     Route: 065
  5. INDINAVIR [Suspect]
     Indication: HIV INFECTION
     Route: 065

REACTIONS (7)
  - Diarrhoea [Unknown]
  - Alcohol intolerance [Unknown]
  - Nephrolithiasis [Unknown]
  - Gastrointestinal disorder [Unknown]
  - Dyslipidaemia [Unknown]
  - Hyperlactacidaemia [Unknown]
  - Gamma-glutamyltransferase increased [Unknown]
